FAERS Safety Report 7145647-7 (Version None)
Quarter: 2010Q4

REPORT INFORMATION
  Report Type: 
  Country: None (occurrence: None)
  Receive Date: 20101208
  Receipt Date: 20101118
  Transmission Date: 20110411
  Serious: No
  Sender: FDA-Public Use
  Company Number: US-B.I. PHARMACEUTICALS,INC./RIDGEFIELD-2010-BP-12992BP

PATIENT
  Age: 76 Year
  Sex: Female

DRUGS (5)
  1. ATROVENT [Suspect]
     Route: 055
  2. XOPENEX [Suspect]
     Indication: ASTHMA
     Route: 055
     Dates: end: 20100829
  3. XOPENEX [Suspect]
     Route: 055
     Dates: start: 20100830
  4. FLOVENT [Concomitant]
  5. NASONEX [Concomitant]

REACTIONS (3)
  - DRUG EFFECT DECREASED [None]
  - HEART RATE INCREASED [None]
  - NAUSEA [None]
